FAERS Safety Report 4384846-4 (Version None)
Quarter: 2004Q2

REPORT INFORMATION
  Report Type: 
  Country: None (occurrence: None)
  Receive Date: 20040623
  Receipt Date: 20040623
  Transmission Date: 20050107
  Serious: Yes (Hospitalization)
  Sender: FDA-Public Use
  Company Number: None

PATIENT
  Age: 62 Year
  Sex: Female
  Weight: 102.9665 kg

DRUGS (16)
  1. PLAVIX [Suspect]
     Indication: STENT PLACEMENT
     Dosage: 300 MG X 1, 75 MG PO DAILY
     Route: 048
     Dates: start: 20040505, end: 20040512
  2. HEPARIN [Suspect]
     Indication: STENT PLACEMENT
     Dosage: 6000 UNITS IV X 1
     Route: 042
     Dates: start: 20040505
  3. REOPRO [Suspect]
     Indication: STENT PLACEMENT
     Dosage: 26 MG IV BOLUS, 10 MCG/MIN MAX INFUSION X 12 HRS
     Route: 040
     Dates: start: 20040505
  4. ASPIRIN [Concomitant]
  5. ZANTAC [Concomitant]
  6. HYDROCHLOROTHIAZIDE [Concomitant]
  7. CLONIDINE HCL [Concomitant]
  8. GLYBURIDE [Concomitant]
  9. METHYLDOPA [Concomitant]
  10. KCL TAB [Concomitant]
  11. PROPRANOLOL [Concomitant]
  12. LISINOPRIL [Concomitant]
  13. LASIX [Concomitant]
  14. LIPITOR [Concomitant]
  15. METFORMIN [Concomitant]
  16. NITROGLYCERIN [Concomitant]

REACTIONS (3)
  - DYSPNOEA [None]
  - PETECHIAE [None]
  - VAGINAL HAEMORRHAGE [None]
